FAERS Safety Report 5591837-4 (Version None)
Quarter: 2008Q1

REPORT INFORMATION
  Report Type: 
  Country: None (occurrence: None)
  Receive Date: 20080115
  Receipt Date: 20080109
  Transmission Date: 20080703
  Serious: Yes (Death, Hospitalization)
  Sender: FDA-Public Use
  Company Number: B0500613A

PATIENT
  Age: 59 Year
  Sex: Female
  Weight: 63 kg

DRUGS (2)
  1. LAPATINIB [Suspect]
     Dosage: 1250MG PER DAY
     Route: 048
     Dates: start: 20071116, end: 20080107
  2. CAPECITABINE [Suspect]
     Dosage: 3800MG PER DAY
     Route: 048
     Dates: start: 20071207, end: 20071221

REACTIONS (6)
  - APATHY [None]
  - BRAIN OEDEMA [None]
  - CARDIAC FAILURE [None]
  - FATIGUE [None]
  - HYPOTONIA [None]
  - SOMNOLENCE [None]
